FAERS Safety Report 11008723 (Version 2)
Quarter: 2015Q2

REPORT INFORMATION
  Report Type: Spontaneous
  Country: US (occurrence: None)
  Receive Date: 20150408
  Receipt Date: 20150507
  Transmission Date: 20150821
  Serious: Yes (Other)
  Sender: FDA-Public Use
  Company Number: 2015SMT00034

PATIENT
  Age: 94 Year
  Sex: Female

DRUGS (17)
  1. AMIODARONE [Concomitant]
     Active Substance: AMIODARONE
  2. VITAMIN E [Concomitant]
     Active Substance: .ALPHA.-TOCOPHEROL
  3. SYNTHROID (LEVOTHYROXIN) [Concomitant]
  4. MAGNESIUM [Concomitant]
     Active Substance: MAGNESIUM
  5. ZYRTEC [Concomitant]
     Active Substance: CETIRIZINE HYDROCHLORIDE
  6. ASPIRIN. [Concomitant]
     Active Substance: ASPIRIN
  7. COLLAGENASE SANTYL [Suspect]
     Active Substance: COLLAGENASE CLOSTRIDIUM HISTOLYTICUM
     Indication: WOUND
     Dosage: UNK, 1X/DAY, TOPICAL
     Route: 061
     Dates: start: 20150205, end: 20150216
  8. SINEMET [Concomitant]
     Active Substance: CARBIDOPA\LEVODOPA
  9. SHARK CARTILAGE [Concomitant]
     Active Substance: SHARK CARTILAGE\SHARK, UNSPECIFIED
  10. RESTORIL [Concomitant]
     Active Substance: TEMAZEPAM
  11. POTASSIUM [Concomitant]
     Active Substance: POTASSIUM
  12. PERCOCET [Concomitant]
     Active Substance: ACETAMINOPHEN\OXYCODONE HYDROCHLORIDE
  13. CALCITRIOL. [Concomitant]
     Active Substance: CALCITRIOL
  14. METOLAZONE. [Concomitant]
     Active Substance: METOLAZONE
  15. FUROSEMIDE. [Concomitant]
     Active Substance: FUROSEMIDE
  16. SENOKOT [Concomitant]
     Active Substance: SENNOSIDES
  17. GLIPIZIDE. [Concomitant]
     Active Substance: GLIPIZIDE

REACTIONS (14)
  - Depressed mood [None]
  - Oedema peripheral [None]
  - Insomnia [None]
  - Procedural anxiety [None]
  - Activities of daily living impaired [None]
  - Fluid retention [None]
  - Wound complication [None]
  - Cellulitis [None]
  - Procedural pain [None]
  - Application site irritation [None]
  - Skin wound [None]
  - Wound infection pseudomonas [None]
  - Fatigue [None]
  - Dermatitis allergic [None]

NARRATIVE: CASE EVENT DATE: 201502
